FAERS Safety Report 10381250 (Version 1)
Quarter: 2014Q3

REPORT INFORMATION
  Report Type: Spontaneous
  Country: JP (occurrence: JP)
  Receive Date: 20140813
  Receipt Date: 20140813
  Transmission Date: 20150326
  Serious: Yes (Hospitalization)
  Sender: FDA-Public Use
  Company Number: CHPA2014JP010485

PATIENT
  Sex: Female

DRUGS (5)
  1. PURSENNID [Suspect]
     Active Substance: SENNOSIDES A AND B CALCIUM
     Dosage: 8 DF, WEEKLY
     Route: 048
  2. MAGLAX [Concomitant]
     Active Substance: MAGNESIUM OXIDE
     Indication: CONSTIPATION
     Route: 048
  3. RIVASTACH [Concomitant]
     Active Substance: RIVASTIGMINE
     Indication: DEMENTIA
     Route: 062
  4. NEW LECICARBON [Concomitant]
     Active Substance: SODIUM BICARBONATE\SODIUM PHOSPHATE, MONOBASIC
     Indication: CONSTIPATION
     Dosage: UNK UNK, BIW
     Route: 054
  5. PURSENNID [Suspect]
     Active Substance: SENNOSIDES A AND B CALCIUM
     Indication: CONSTIPATION
     Dosage: 1 DF, DAILY
     Route: 048

REACTIONS (2)
  - Hepatic function abnormal [Unknown]
  - Chromaturia [Unknown]
